FAERS Safety Report 6139724-7 (Version None)
Quarter: 2009Q2

REPORT INFORMATION
  Report Type: 
  Country: None (occurrence: None)
  Receive Date: 20090401
  Receipt Date: 20090323
  Transmission Date: 20091009
  Serious: Yes (Other)
  Sender: FDA-Public Use
  Company Number: IN-ABBOTT-09P-078-0564117-00

PATIENT
  Age: 18 Year
  Sex: Female

DRUGS (1)
  1. VALPROATE SODIUM [Suspect]
     Indication: GRAND MAL CONVULSION

REACTIONS (5)
  - CONVULSION [None]
  - DRUG LEVEL ABOVE THERAPEUTIC [None]
  - HYPERAMMONAEMIA [None]
  - METABOLIC ENCEPHALOPATHY [None]
  - MOOD ALTERED [None]
